FAERS Safety Report 4971045-8 (Version None)
Quarter: 2006Q2

REPORT INFORMATION
  Report Type: 
  Country: None (occurrence: None)
  Receive Date: 20060411
  Receipt Date: 20060411
  Transmission Date: 20061013
  Serious: Yes (Hospitalization)
  Sender: FDA-Public Use
  Company Number: None

PATIENT
  Age: 65 Year
  Sex: Female
  Weight: 74.8435 kg

DRUGS (1)
  1. PHOSPHASODA 3OUNCES FLEETS [Suspect]
     Indication: COLONOSCOPY
     Dosage: 3 OUNCES ONCE PO
     Route: 048
     Dates: start: 20060315, end: 20060315

REACTIONS (5)
  - NEPHROCALCINOSIS [None]
  - POST PROCEDURAL COMPLICATION [None]
  - RENAL CYST [None]
  - RENAL FAILURE ACUTE [None]
  - RENAL MASS [None]
